FAERS Safety Report 6346514-9 (Version None)
Quarter: 2009Q3

REPORT INFORMATION
  Report Type: 
  Country: None (occurrence: None)
  Receive Date: 20090909
  Receipt Date: 20090827
  Transmission Date: 20100115
  Serious: Yes (Other)
  Sender: FDA-Public Use
  Company Number: US-ELI_LILLY_AND_COMPANY-US200907001311

PATIENT
  Sex: Female

DRUGS (4)
  1. FORTEO [Suspect]
     Indication: OSTEOPOROSIS
     Dosage: UNK, UNK
     Dates: start: 20090501
  2. FORTEO [Suspect]
  3. PLAVIX [Concomitant]
  4. CALCIUM [Concomitant]

REACTIONS (7)
  - FALL [None]
  - LIMB INJURY [None]
  - NAUSEA [None]
  - PAIN IN EXTREMITY [None]
  - SKIN LESION [None]
  - THROMBOSIS [None]
  - TRAUMATIC HAEMATOMA [None]
